FAERS Safety Report 11837405 (Version 1)
Quarter: 2015Q4

REPORT INFORMATION
  Report Type: Spontaneous
  Country: GB (occurrence: GB)
  Receive Date: 20151215
  Receipt Date: 20151215
  Transmission Date: 20160305
  Serious: Yes (Life-Threatening, Disabling, Other)
  Sender: FDA-Public Use
  Company Number: GB-TEVA-615514ACC

PATIENT
  Age: 26 Year
  Sex: Male

DRUGS (13)
  1. TRAMADOL. [Suspect]
     Active Substance: TRAMADOL
     Indication: ANALGESIC THERAPY
     Dosage: 200 MILLIGRAM DAILY;
     Route: 048
     Dates: start: 2013, end: 20151124
  2. MACROGOL [Concomitant]
     Active Substance: POLYETHYLENE GLYCOLS
     Dosage: 1 DOSAGE FORMS DAILY; AT NIGHT
  3. BACLOFEN. [Concomitant]
     Active Substance: BACLOFEN
     Dosage: 60 MILLIGRAM DAILY;
  4. VENTOLIN [Concomitant]
     Active Substance: ALBUTEROL SULFATE
     Dosage: 4 DOSAGE FORMS DAILY; IN THE MORNING AND NIGHT
     Route: 055
  5. SENNA [Concomitant]
     Active Substance: SENNA LEAF\SENNOSIDES\SENNOSIDES A AND B
     Dosage: 15 MILLIGRAM DAILY;
  6. BECONASE AQ [Concomitant]
     Active Substance: BECLOMETHASONE DIPROPIONATE MONOHYDRATE
  7. KEPPRA [Concomitant]
     Active Substance: LEVETIRACETAM
     Dosage: 500 MG IN THE MORNING AND 1500MG AT NIGHT
  8. OMEPRAZOLE. [Concomitant]
     Active Substance: OMEPRAZOLE
     Dosage: 40 MILLIGRAM DAILY;
  9. HIBISCRUB [Concomitant]
  10. FOSTAIR [Concomitant]
     Active Substance: BECLOMETHASONE\FORMOTEROL
     Dosage: 4 DOSAGE FORMS DAILY; IN MORNING AND NIGHT
     Route: 055
  11. GABAPENTIN. [Concomitant]
     Active Substance: GABAPENTIN
     Dosage: 1800 MILLIGRAM DAILY;
  12. FOLIC ACID. [Concomitant]
     Active Substance: FOLIC ACID
  13. ACIDEX [Concomitant]
     Active Substance: CALCIUM CARBONATE\SODIUM ALGINATE\SODIUM BICARBONATE

REACTIONS (12)
  - Aggression [Recovering/Resolving]
  - Slow speech [Recovering/Resolving]
  - Feeling abnormal [Recovering/Resolving]
  - Abnormal sensation in eye [Unknown]
  - Nervousness [Unknown]
  - Mental disorder [Recovering/Resolving]
  - Inhibitory drug interaction [Recovering/Resolving]
  - Hypersomnia [Recovering/Resolving]
  - Appetite disorder [Unknown]
  - Visual impairment [Recovering/Resolving]
  - Hypoglycaemia [Recovering/Resolving]
  - Dizziness [Recovering/Resolving]

NARRATIVE: CASE EVENT DATE: 2014
